FAERS Safety Report 6964355-6 (Version None)
Quarter: 2010Q3

REPORT INFORMATION
  Report Type: 
  Country: None (occurrence: None)
  Receive Date: 20100903
  Receipt Date: 20100825
  Transmission Date: 20110219
  Serious: No
  Sender: FDA-Public Use
  Company Number: 2009BI040070

PATIENT
  Sex: Female

DRUGS (2)
  1. TYSABRI [Suspect]
     Indication: MULTIPLE SCLEROSIS
     Route: 042
     Dates: start: 20090326, end: 20090326
  2. TYSABRI [Suspect]
     Route: 042
     Dates: start: 20100114, end: 20100401

REACTIONS (11)
  - ALCOHOLISM [None]
  - ANGER [None]
  - BACK PAIN [None]
  - DEPRESSION [None]
  - DRUG ABUSE [None]
  - DRUG INEFFECTIVE [None]
  - FATIGUE [None]
  - OPTIC NEURITIS [None]
  - PAIN IN EXTREMITY [None]
  - PROCEDURAL NAUSEA [None]
  - STRESS [None]
